FAERS Safety Report 16458959 (Version 1)
Quarter: 2019Q2

REPORT INFORMATION
  Report Type: Spontaneous
  Country: US (occurrence: US)
  Receive Date: 20190620
  Receipt Date: 20190620
  Transmission Date: 20190711
  Serious: No
  Sender: FDA-Public Use
  Company Number: US-THERAPEUTICSMD-2019TMD01105

PATIENT
  Age: 63 Year
  Sex: Female

DRUGS (2)
  1. UNKNOWN ANTIBIOTIC [Suspect]
     Active Substance: UNSPECIFIED INGREDIENT
     Dosage: UNK
  2. IMVEXXY [Suspect]
     Active Substance: ESTRADIOL
     Dosage: UNK
     Dates: end: 201903

REACTIONS (1)
  - Fungal infection [Unknown]

NARRATIVE: CASE EVENT DATE: 201903
